FAERS Safety Report 13407399 (Version 2)
Quarter: 2017Q2

REPORT INFORMATION
  Report Type: Spontaneous
  Country: GB (occurrence: GB)
  Receive Date: 20170405
  Receipt Date: 20170613
  Transmission Date: 20170830
  Serious: Yes (Hospitalization)
  Sender: FDA-Public Use
  Company Number: GB-AMGEN-GBRSP2017051951

PATIENT
  Age: 70 Year
  Sex: Female

DRUGS (1)
  1. ENBREL [Suspect]
     Active Substance: ETANERCEPT
     Indication: PRODUCT USED FOR UNKNOWN INDICATION
     Dosage: 50 MG, WEEKLY
     Route: 058

REACTIONS (7)
  - Hiatus hernia [Unknown]
  - Infection [Unknown]
  - Malaise [Unknown]
  - Loss of consciousness [Unknown]
  - Paraesthesia [Not Recovered/Not Resolved]
  - Fall [Unknown]
  - Chest pain [Not Recovered/Not Resolved]
